FAERS Safety Report 5094304-X (Version None)
Quarter: 2006Q3

REPORT INFORMATION
  Report Type: 
  Country: None (occurrence: None)
  Receive Date: 20060731
  Receipt Date: 20060428
  Transmission Date: 20061208
  Serious: No
  Sender: FDA-Public Use
  Company Number: 2006PV012994

PATIENT
  Age: 72 Year
  Sex: Female
  Weight: 84.8226 kg

DRUGS (6)
  1. BYETTA [Suspect]
     Indication: DIABETES MELLITUS NON-INSULIN-DEPENDENT
     Dosage: 10 MCG; QAM; SC; SEE IMAGE
     Route: 058
     Dates: start: 20051101, end: 20051201
  2. BYETTA [Suspect]
     Indication: DIABETES MELLITUS NON-INSULIN-DEPENDENT
     Dosage: 10 MCG; QAM; SC; SEE IMAGE
     Route: 058
     Dates: start: 20051201
  3. BYETTA [Suspect]
     Indication: DIABETES MELLITUS NON-INSULIN-DEPENDENT
     Dosage: 10 MCG; QAM; SC; SEE IMAGE
     Route: 058
     Dates: start: 20060417
  4. HUMULIN N [Concomitant]
  5. HUMALOG [Concomitant]
  6. GLUCOPHAGE [Concomitant]

REACTIONS (8)
  - BLOOD GLUCOSE DECREASED [None]
  - DISORIENTATION [None]
  - FEELING ABNORMAL [None]
  - MIDDLE EAR EFFUSION [None]
  - MUSCLE SPASMS [None]
  - NAUSEA [None]
  - TREMOR [None]
  - VOMITING [None]
